FAERS Safety Report 4546037-3 (Version None)
Quarter: 2005Q1

REPORT INFORMATION
  Report Type: 
  Country: None (occurrence: None)
  Receive Date: 20050103
  Receipt Date: 20041217
  Transmission Date: 20050727
  Serious: Yes (Death, Hospitalization)
  Sender: FDA-Public Use
  Company Number: 2004BI001898

PATIENT
  Age: 62 Year
  Sex: Female
  Weight: 57.6068 kg

DRUGS (1)
  1. AVONEX [Suspect]
     Indication: MULTIPLE SCLEROSIS
     Dosage: 30 UG;QW;IM
     Route: 030
     Dates: start: 20000101, end: 20020101

REACTIONS (6)
  - BRAIN OEDEMA [None]
  - CYSTITIS [None]
  - DISEASE PROGRESSION [None]
  - FAECAL INCONTINENCE [None]
  - MOVEMENT DISORDER [None]
  - MULTIPLE SCLEROSIS [None]
